FAERS Safety Report 6832671-4 (Version None)
Quarter: 2010Q3

REPORT INFORMATION
  Report Type: 
  Country: None (occurrence: None)
  Receive Date: 20100707
  Receipt Date: 20100616
  Transmission Date: 20110219
  Serious: Yes (Disabling, Other)
  Sender: FDA-Public Use
  Company Number: CA-SOLVAY-00310003816

PATIENT
  Age: 42 Year
  Sex: Male

DRUGS (2)
  1. LUVOX [Suspect]
     Indication: PRODUCT USED FOR UNKNOWN INDICATION
     Dosage: 100 MILLIGRAM(S), ORAL; 50 MILLIGRAM(S), ORAL
     Route: 048
  2. IMOVANE (ZOPICLONE) [Concomitant]

REACTIONS (18)
  - ANAEMIA [None]
  - CENTRAL NERVOUS SYSTEM LESION [None]
  - CONTUSION [None]
  - CONVULSION [None]
  - HAEMATOCHEZIA [None]
  - HYPOAESTHESIA [None]
  - HYPOAESTHESIA FACIAL [None]
  - INSOMNIA [None]
  - OEDEMA PERIPHERAL [None]
  - SKIN DISORDER [None]
  - SKIN EXFOLIATION [None]
  - SKIN LACERATION [None]
  - SLEEP STUDY ABNORMAL [None]
  - SWELLING [None]
  - SWELLING FACE [None]
  - TRAUMATIC BRAIN INJURY [None]
  - ULCER [None]
  - WEIGHT DECREASED [None]
